FAERS Safety Report 15556946 (Version 2)
Quarter: 2018Q4

REPORT INFORMATION
  Report Type: Spontaneous
  Country: US (occurrence: US)
  Receive Date: 20181026
  Receipt Date: 20181203
  Transmission Date: 20190205
  Serious: Yes (Other)
  Sender: FDA-Public Use
  Company Number: US-PFIZER INC-2018432582

PATIENT
  Age: 58 Year
  Sex: Female
  Weight: 55.34 kg

DRUGS (3)
  1. GENOTROPIN [Suspect]
     Active Substance: SOMATROPIN
     Indication: HYPOTHALAMO-PITUITARY DISORDER
     Dosage: 0.4 MG, 1X/DAY
     Route: 030
     Dates: start: 20180811
  2. GENOTROPIN [Suspect]
     Active Substance: SOMATROPIN
     Dosage: UNK
  3. GABAPENTIN. [Concomitant]
     Active Substance: GABAPENTIN
     Indication: NERVE INJURY
     Dosage: 200 MG, 1X/DAY (EVERY NIGHT )
     Route: 048

REACTIONS (4)
  - Product dose omission [Unknown]
  - Incorrect route of product administration [Unknown]
  - Device defective [Unknown]
  - Brain injury [Unknown]
